FAERS Safety Report 12687734 (Version 1)
Quarter: 2016Q3

REPORT INFORMATION
  Report Type: Spontaneous
  Country: CZ (occurrence: CZ)
  Receive Date: 20160826
  Receipt Date: 20160826
  Transmission Date: 20161109
  Serious: Yes (Death, Other)
  Sender: FDA-Public Use
  Company Number: CZ-ACCORD-043524

PATIENT
  Age: 47 Year
  Sex: Male

DRUGS (3)
  1. IRINOTECAN [Suspect]
     Active Substance: IRINOTECAN
     Indication: NEOPLASM MALIGNANT
     Dosage: FOLFIRI
  2. FLUOROURACIL. [Suspect]
     Active Substance: FLUOROURACIL
     Indication: NEOPLASM MALIGNANT
     Dosage: FOLFIRI
  3. FOLINIC ACID [Suspect]
     Active Substance: LEUCOVORIN
     Indication: NEOPLASM MALIGNANT
     Dosage: FOLFIRI

REACTIONS (2)
  - Death [Fatal]
  - Ileus [Unknown]
